FAERS Safety Report 16374095 (Version 2)
Quarter: 2019Q3

REPORT INFORMATION
  Report Type: Report from Study
  Country: US (occurrence: US)
  Receive Date: 20190530
  Receipt Date: 20190718
  Transmission Date: 20191004
  Serious: Yes (Other)
  Sender: FDA-Public Use
  Company Number: US-TEVA-2019-US-1055683

PATIENT
  Age: 65 Year
  Sex: Male

DRUGS (1)
  1. WARFARIN [Suspect]
     Active Substance: WARFARIN
     Indication: ANTICOAGULANT THERAPY
     Route: 048

REACTIONS (1)
  - Gastrointestinal haemorrhage [Unknown]
